FAERS Safety Report 26169712 (Version 1)
Quarter: 2025Q4

REPORT INFORMATION
  Report Type: Spontaneous
  Country: EU (occurrence: EU)
  Receive Date: 20251217
  Receipt Date: 20251217
  Transmission Date: 20260118
  Serious: Yes (Other)
  Sender: IDORSIA PHARMACEUTICALS
  Company Number: EU-EXELTIS PHARMACEUTICAL HOLDING, S.L.-2408FR10793

PATIENT

DRUGS (14)
  1. QUVIVIQ [Suspect]
     Active Substance: DARIDOREXANT
     Indication: Product used for unknown indication
     Dosage: 50 MILLIGRAM, QD, AT BEDTIME
     Route: 065
  2. NOMEGESTROL [Suspect]
     Active Substance: NOMEGESTROL
     Indication: Dysmenorrhoea
     Route: 065
  3. NOMEGESTROL [Suspect]
     Active Substance: NOMEGESTROL
     Indication: Intermenstrual bleeding
  4. NOMEGESTROL ACETATE [Suspect]
     Active Substance: NOMEGESTROL ACETATE
     Indication: Intermenstrual bleeding
     Dosage: UNK
     Route: 065
     Dates: start: 2010, end: 2021
  5. NOMEGESTROL ACETATE [Suspect]
     Active Substance: NOMEGESTROL ACETATE
     Indication: Dysmenorrhoea
  6. CHLORMADINONE [Suspect]
     Active Substance: CHLORMADINONE
     Indication: Intermenstrual bleeding
     Route: 065
  7. CHLORMADINONE [Suspect]
     Active Substance: CHLORMADINONE
     Indication: Dysmenorrhoea
  8. CHLORMADINONE ACETATE [Suspect]
     Active Substance: CHLORMADINONE ACETATE
     Indication: Intermenstrual bleeding
     Dosage: UNK
     Route: 065
     Dates: start: 20100618
  9. CHLORMADINONE ACETATE [Suspect]
     Active Substance: CHLORMADINONE ACETATE
     Indication: Dysmenorrhoea
  10. CHLORMADINONE ACETATE [Suspect]
     Active Substance: CHLORMADINONE ACETATE
     Indication: Intermenstrual bleeding
     Dosage: UNK
     Route: 065
     Dates: start: 20100318, end: 2021
  11. CHLORMADINONE ACETATE [Suspect]
     Active Substance: CHLORMADINONE ACETATE
     Indication: Dysmenorrhoea
     Dosage: UNK
     Route: 065
     Dates: start: 20100527
  12. CHOLECALCIFEROL [Concomitant]
     Active Substance: CHOLECALCIFEROL
  13. CYAMEMAZINE [Concomitant]
     Active Substance: CYAMEMAZINE
  14. BROMAZEPAM [Concomitant]
     Active Substance: BROMAZEPAM

REACTIONS (2)
  - Meningioma [Unknown]
  - Product use in unapproved indication [Unknown]

NARRATIVE: CASE EVENT DATE: 20211021
